FAERS Safety Report 17263256 (Version 1)
Quarter: 2020Q1

REPORT INFORMATION
  Report Type: Report from Study
  Country: TH (occurrence: TH)
  Receive Date: 20200113
  Receipt Date: 20200113
  Transmission Date: 20200409
  Serious: Yes (Death, Other)
  Sender: FDA-Public Use
  Company Number: TH-AMGEN-THASL2020003328

PATIENT
  Age: 78 Year
  Sex: Female

DRUGS (1)
  1. PROLIA [Suspect]
     Active Substance: DENOSUMAB
     Indication: PRODUCT USED FOR UNKNOWN INDICATION
     Dosage: UNK UNK, Q6MO
     Route: 065

REACTIONS (4)
  - Hepatic cirrhosis [Unknown]
  - Pneumonia [Fatal]
  - Hepatic neoplasm [Unknown]
  - Hypertension [Unknown]
